FAERS Safety Report 8276315-6 (Version None)
Quarter: 2012Q2

REPORT INFORMATION
  Report Type: 
  Country: None (occurrence: None)
  Receive Date: 20120412
  Receipt Date: 20120407
  Transmission Date: 20120825
  Serious: Yes (Other)
  Sender: FDA-Public Use
  Company Number: PHHY2012MX030383

PATIENT
  Sex: Female

DRUGS (3)
  1. ITRACONAZOLE [Concomitant]
     Dosage: 1 DF, QD
  2. PHENOBARBITAL TAB [Concomitant]
     Dosage: 1 DF, QD
  3. TEGRETOL [Suspect]
     Dosage: 400 MG, BID
     Route: 048
     Dates: end: 20120406

REACTIONS (2)
  - SKIN PAPILLOMA [None]
  - CONVULSION [None]
